FAERS Safety Report 14946747 (Version 1)
Quarter: 2018Q2

REPORT INFORMATION
  Report Type: Spontaneous
  Country: US (occurrence: US)
  Receive Date: 20180508
  Receipt Date: 20180508
  Transmission Date: 20180711
  Serious: No
  Sender: FDA-Public Use
  Company Number: None

PATIENT
  Age: 70 Year
  Sex: Male

DRUGS (1)
  1. ZYTIGA [Suspect]
     Active Substance: ABIRATERONE ACETATE
     Indication: VULVAL CANCER
     Route: 048
     Dates: start: 20161025, end: 20180307

REACTIONS (2)
  - Blood glucose increased [None]
  - Muscle spasms [None]

NARRATIVE: CASE EVENT DATE: 20180402
